FAERS Safety Report 14685027 (Version 1)
Quarter: 2018Q1

REPORT INFORMATION
  Report Type: Spontaneous
  Country: US (occurrence: US)
  Receive Date: 20180327
  Receipt Date: 20180327
  Transmission Date: 20180509
  Serious: No
  Sender: FDA-Public Use
  Company Number: US-GALDERMA-US17004527

PATIENT
  Sex: Male

DRUGS (1)
  1. DIFFERIN GEL [Suspect]
     Active Substance: ADAPALENE
     Indication: KERATOSIS FOLLICULAR
     Dosage: 0.1%
     Route: 061
     Dates: start: 2017

REACTIONS (3)
  - Drug ineffective for unapproved indication [Unknown]
  - Rash [Unknown]
  - Intentional product use issue [Recovered/Resolved]

NARRATIVE: CASE EVENT DATE: 2017
